FAERS Safety Report 10375947 (Version 1)
Quarter: 2014Q1

REPORT INFORMATION
  Report Type: Spontaneous
  Country: US (occurrence: None)
  Receive Date: 20140306
  Receipt Date: 20140306
  Transmission Date: 20141002
  Serious: Yes (Hospitalization)
  Sender: FDA-Public Use
  Company Number: 163-21880-13034785

PATIENT
  Age: 52 Year
  Sex: Male

DRUGS (2)
  1. REVLIMID (LENALIDOMIDE) (10 MILLIGRAM, CAPSULES) [Suspect]
     Indication: PLASMA CELL MYELOMA
     Dosage: 10MG, 1 IN 1D, PO
     Route: 048
     Dates: start: 200905, end: 2010
  2. DEXAMETHASONE (DEXAMETHASONE) [Concomitant]

REACTIONS (2)
  - Diarrhoea [None]
  - Dizziness [None]
